FAERS Safety Report 10727580 (Version 2)
Quarter: 2015Q1

REPORT INFORMATION
  Report Type: Spontaneous
  Country: FR (occurrence: FR)
  Receive Date: 20150121
  Receipt Date: 20150123
  Transmission Date: 20150721
  Serious: Yes (Other)
  Sender: FDA-Public Use
  Company Number: PHHY2015FR005661

PATIENT
  Age: 24 Year
  Sex: Male

DRUGS (1)
  1. DESLORATADIN HEXAL [Suspect]
     Active Substance: DESLORATADINE
     Indication: RESPIRATORY DISORDER
     Dosage: 15 DF, ONCE/SINGLE
     Route: 048
     Dates: start: 20141128, end: 20141128

REACTIONS (5)
  - Overdose [Recovered/Resolved]
  - Somnolence [Recovered/Resolved]
  - Anuria [Recovered/Resolved]
  - Abdominal pain [Recovered/Resolved]
  - Medication error [Recovered/Resolved]

NARRATIVE: CASE EVENT DATE: 20141128
